FAERS Safety Report 15427392 (Version 2)
Quarter: 2018Q4

REPORT INFORMATION
  Report Type: Spontaneous
  Country: US (occurrence: US)
  Receive Date: 20180925
  Receipt Date: 20181214
  Transmission Date: 20190204
  Serious: No
  Sender: FDA-Public Use
  Company Number: US-SA-2018SA266340

PATIENT
  Age: 57 Year
  Sex: Female
  Weight: 130 kg

DRUGS (20)
  1. TOPIRAMATE. [Concomitant]
     Active Substance: TOPIRAMATE
  2. LINZESS [Concomitant]
     Active Substance: LINACLOTIDE
  3. XIIDRA [Concomitant]
     Active Substance: LIFITEGRAST
  4. MOMETASONE FUROATE. [Concomitant]
     Active Substance: MOMETASONE FUROATE
  5. MONTELUKAST [Concomitant]
     Active Substance: MONTELUKAST SODIUM
  6. TIZANIDINE. [Concomitant]
     Active Substance: TIZANIDINE
  7. CLONAZEPAM. [Concomitant]
     Active Substance: CLONAZEPAM
  8. FLUCELVAX NOS [Concomitant]
     Active Substance: INFLUENZA A VIRUS A/BRISBANE/10/2010 (H1N1) ANTIGEN (MDCK CELL DERIVED, PROPIOLACTONE INACTIVATED)\INFLUENZA A VIRUS A/VICTORIA/361/2011 IVR-165 (H3N2) ANTIGEN (MDCK CELL DERIVED, PROPIOLACTONE INACTIVATED)\INFLUENZA B VIRUS B/WISCONSIN/1/2010) ANTIGEN (MDCK CELL DERIVED, PROPIOLACTONE INACTIVATED)
  9. ENBREL [Concomitant]
     Active Substance: ETANERCEPT
  10. ALLERGY RELIEF-D [Concomitant]
     Active Substance: LORATADINE\PSEUDOEPHEDRINE SULFATE
  11. PANTOPRAZOLE [Concomitant]
     Active Substance: PANTOPRAZOLE
  12. TRAMADOL. [Concomitant]
     Active Substance: TRAMADOL
  13. TRIAZOLAM. [Concomitant]
     Active Substance: TRIAZOLAM
  14. PROLIA [Concomitant]
     Active Substance: DENOSUMAB
  15. METHOTREXATE. [Concomitant]
     Active Substance: METHOTREXATE
  16. SYNTHROID [Concomitant]
     Active Substance: LEVOTHYROXINE SODIUM
  17. SUMATRIPTAN. [Concomitant]
     Active Substance: SUMATRIPTAN
  18. PRALUENT [Suspect]
     Active Substance: ALIROCUMAB
     Indication: TYPE IIA HYPERLIPIDAEMIA
     Dosage: 1 ML, QOW
     Route: 058
  19. ALIROCUMAB PREFILLED PEN [Suspect]
     Active Substance: ALIROCUMAB
     Indication: TYPE IIA HYPERLIPIDAEMIA
     Dosage: 1 ML, QOW
     Route: 058
  20. FOLIC ACID. [Concomitant]
     Active Substance: FOLIC ACID

REACTIONS (3)
  - Diarrhoea [Unknown]
  - Rash [Unknown]
  - Hypersensitivity [Unknown]
